FAERS Safety Report 12326097 (Version 1)
Quarter: 2016Q2

REPORT INFORMATION
  Report Type: Spontaneous
  Country: FR (occurrence: FR)
  Receive Date: 20160503
  Receipt Date: 20160503
  Transmission Date: 20160815
  Serious: Yes (Hospitalization)
  Sender: FDA-Public Use
  Company Number: FR-ACCORD-039893

PATIENT
  Age: 60 Year
  Sex: Male

DRUGS (7)
  1. MYCOPHENOLIC ACID. [Suspect]
     Active Substance: MYCOPHENOLIC ACID
     Indication: IMMUNOSUPPRESSION
  2. PREDNISOLONE. [Suspect]
     Active Substance: PREDNISOLONE
     Indication: IMMUNOSUPPRESSION
  3. TACROLIMUS. [Suspect]
     Active Substance: TACROLIMUS
     Indication: IMMUNOSUPPRESSION
  4. ANTITHYMOCYTE IMMUNOGLOBULIN [Suspect]
     Active Substance: THYMOCYTE IMMUNE GLOBULIN NOS
     Indication: IMMUNOSUPPRESSION
  5. SULFAMETHOXAZOLE/TRIMETHOPRIM [Concomitant]
     Indication: ANTI-INFECTIVE THERAPY
  6. VALGANCICLOVIR/VALGANCICLOVIR HYDROCHLORIDE [Concomitant]
     Indication: ANTI-INFECTIVE THERAPY
  7. PENTAMIDINE/PENTAMIDINE DIMESILATE/PENTAMIDINE ISETHIONATE [Concomitant]
     Indication: ANTI-INFECTIVE THERAPY

REACTIONS (2)
  - Mucormycosis [Recovering/Resolving]
  - Polyomavirus-associated nephropathy [Unknown]
